FAERS Safety Report 6648313-7 (Version None)
Quarter: 2010Q1

REPORT INFORMATION
  Report Type: 
  Country: None (occurrence: None)
  Receive Date: 20100324
  Receipt Date: 20100319
  Transmission Date: 20100710
  Serious: Yes (Other)
  Sender: FDA-Public Use
  Company Number: US-B.I. PHARMACEUTICALS,INC./RIDGEFIELD-2010-BP-03292BP

PATIENT

DRUGS (1)
  1. MICARDIS [Suspect]

REACTIONS (1)
  - HEPATIC ENZYME ABNORMAL [None]
